FAERS Safety Report 8492615-9 (Version None)
Quarter: 2012Q3

REPORT INFORMATION
  Report Type: 
  Country: None (occurrence: None)
  Receive Date: 20120706
  Receipt Date: 20120629
  Transmission Date: 20120928
  Serious: Yes (Death, Hospitalization)
  Sender: FDA-Public Use
  Company Number: ES-CELGENEUS-144-21880-12012970

PATIENT
  Sex: Male
  Weight: 86.3 kg

DRUGS (32)
  1. REVLIMID [Suspect]
     Dosage: 25 MILLIGRAM
     Route: 048
     Dates: start: 20100628, end: 20100711
  2. REVLIMID [Suspect]
     Route: 048
     Dates: start: 20110207, end: 20110227
  3. REVLIMID [Suspect]
     Dosage: 25 MILLIGRAM
     Route: 048
     Dates: start: 20110919, end: 20111009
  4. REVLIMID [Suspect]
     Dosage: 25 MILLIGRAM
     Route: 048
     Dates: start: 20111017, end: 20111106
  5. FUROSEMIDE [Concomitant]
     Dosage: 1 CAPSULE
     Route: 065
  6. ALLOPURINOL [Concomitant]
     Dosage: 300 MILLIGRAM
     Route: 065
  7. REVLIMID [Suspect]
     Dosage: 25 MILLIGRAM
     Route: 048
     Dates: start: 20110228, end: 20110306
  8. SINTROM [Concomitant]
     Route: 065
     Dates: start: 20100920
  9. DURAGESIC-100 [Concomitant]
     Route: 065
  10. TOSEINA [Concomitant]
     Route: 065
  11. RED BLOOD CELLS [Concomitant]
     Route: 065
     Dates: start: 20110419, end: 20110419
  12. REVLIMID [Suspect]
     Indication: MULTIPLE MYELOMA
     Dosage: 25
     Route: 048
     Dates: start: 20100504, end: 20100524
  13. REVLIMID [Suspect]
     Route: 048
     Dates: start: 20100531, end: 20100620
  14. REVLIMID [Suspect]
     Dosage: 25 MILLIGRAM
     Route: 048
     Dates: start: 20110110, end: 20110130
  15. ENALAPRIL MALEATE [Concomitant]
     Dosage: 40 MILLIGRAM
     Route: 065
  16. ARANESP [Concomitant]
     Route: 065
     Dates: start: 20110419
  17. DURAGESIC-100 [Concomitant]
     Route: 065
  18. RED BLOOD CELLS [Concomitant]
     Route: 065
     Dates: start: 20111003, end: 20111003
  19. REVLIMID [Suspect]
     Route: 048
     Dates: start: 20100712, end: 20100718
  20. DEXAMETHASONE SODIUM PHOSPHATE [Suspect]
     Route: 048
     Dates: start: 20100531, end: 20100627
  21. VENTOLIN [Concomitant]
     Route: 065
  22. RED BLOOD CELLS [Concomitant]
     Route: 065
     Dates: start: 20110722, end: 20110722
  23. REVLIMID [Suspect]
     Route: 048
     Dates: start: 20100727, end: 20110101
  24. SPIRIVA [Concomitant]
     Route: 055
  25. COROPRES [Concomitant]
     Dosage: 50 MILLIGRAM
     Route: 065
  26. RILAST [Concomitant]
     Route: 055
  27. REVLIMID [Suspect]
     Route: 048
     Dates: start: 20110404, end: 20110911
  28. DEXAMETHASONE SODIUM PHOSPHATE [Suspect]
     Indication: MULTIPLE MYELOMA
     Route: 048
     Dates: start: 20100504, end: 20100530
  29. DEXAMETHASONE SODIUM PHOSPHATE [Suspect]
     Route: 048
     Dates: start: 20110919, end: 20111016
  30. OMEPRAZOLE [Concomitant]
     Dosage: 20 MILLIGRAM
     Route: 065
  31. MORPHINE SULFATE [Concomitant]
     Route: 065
  32. RED BLOOD CELLS [Concomitant]
     Route: 065
     Dates: start: 20110822, end: 20110822

REACTIONS (3)
  - MULTIPLE MYELOMA [None]
  - RENAL FAILURE [None]
  - RIB FRACTURE [None]
